FAERS Safety Report 24808131 (Version 1)
Quarter: 2025Q1

REPORT INFORMATION
  Report Type: Spontaneous
  Country: US (occurrence: US)
  Receive Date: 20250106
  Receipt Date: 20250106
  Transmission Date: 20250409
  Serious: Yes (Other)
  Sender: STRIDES
  Company Number: US-STRIDES ARCOLAB LIMITED-2025SP000039

PATIENT
  Age: 55 Year
  Sex: Female

DRUGS (1)
  1. OMEPRAZOLE [Suspect]
     Active Substance: OMEPRAZOLE
     Indication: Eosinophilic oesophagitis
     Route: 065

REACTIONS (2)
  - Oesophagitis [Recovered/Resolved]
  - Drug ineffective for unapproved indication [Unknown]
